FAERS Safety Report 9888917 (Version 1)
Quarter: 2014Q1

REPORT INFORMATION
  Report Type: Spontaneous
  Country: US (occurrence: US)
  Receive Date: 20140211
  Receipt Date: 20140211
  Transmission Date: 20141002
  Serious: Yes (Other)
  Sender: FDA-Public Use
  Company Number: US-GLAXOSMITHKLINE-A1060510A

PATIENT
  Age: 67 Year
  Sex: Female

DRUGS (2)
  1. ADVAIR [Suspect]
     Indication: ASTHMA
     Route: 065
     Dates: start: 20040805
  2. FLONASE [Suspect]
     Indication: ASTHMA
     Dosage: 50MCG UNKNOWN
     Route: 045
     Dates: start: 20040805

REACTIONS (1)
  - Rotator cuff repair [Unknown]
